FAERS Safety Report 8827247 (Version 3)
Quarter: 2013Q2

REPORT INFORMATION
  Report Type: Spontaneous
  Country: US (occurrence: US)
  Receive Date: 20121005
  Receipt Date: 20130627
  Transmission Date: 20140414
  Serious: No
  Sender: FDA-Public Use
  Company Number: US-ASTRAZENECA-2012SE74980

PATIENT
  Age: 78 Year
  Sex: Female

DRUGS (7)
  1. RHINOCORT AQUA [Suspect]
     Indication: MULTIPLE ALLERGIES
     Route: 045
  2. RHINOCORT AQUA [Suspect]
     Indication: ASTHMA
     Route: 045
  3. SYMBICORT [Suspect]
     Dosage: UNKNOWN
     Route: 055
  4. NEXIUM [Suspect]
     Indication: GASTROOESOPHAGEAL REFLUX DISEASE
     Route: 048
  5. NEXIUM [Suspect]
     Indication: HERNIA
     Route: 048
  6. SEROQUEL XR [Suspect]
     Indication: BIPOLAR DISORDER
     Route: 048
  7. SINGULAIR [Concomitant]

REACTIONS (5)
  - Multiple allergies [Unknown]
  - Herpes zoster [Unknown]
  - Abdominal discomfort [Unknown]
  - Malaise [Unknown]
  - Drug dose omission [Unknown]
